FAERS Safety Report 5799623-7 (Version None)
Quarter: 2008Q3

REPORT INFORMATION
  Report Type: 
  Country: None (occurrence: None)
  Receive Date: 20080701
  Receipt Date: 20080701
  Transmission Date: 20090109
  Serious: No
  Sender: FDA-Public Use
  Company Number: None

PATIENT
  Age: 57 Year
  Sex: Male
  Weight: 60 kg

DRUGS (1)
  1. VARENICLINE [Suspect]
     Dosage: 1MG BID PO
     Route: 048
     Dates: start: 20080219, end: 20080401

REACTIONS (1)
  - ABDOMINAL DISCOMFORT [None]
